FAERS Safety Report 19447368 (Version 1)
Quarter: 2021Q2

REPORT INFORMATION
  Report Type: Spontaneous
  Country: CN (occurrence: CN)
  Receive Date: 20210622
  Receipt Date: 20210622
  Transmission Date: 20210717
  Serious: Yes (Other)
  Sender: FDA-Public Use
  Company Number: CN-ROCHE-2849994

PATIENT
  Age: 63 Year
  Sex: Female
  Weight: 50 kg

DRUGS (7)
  1. AVASTIN [Suspect]
     Active Substance: BEVACIZUMAB
     Indication: OVARIAN EPITHELIAL CANCER RECURRENT
     Route: 041
     Dates: start: 20210529, end: 20210529
  2. SODIUM CHLORIDE. [Concomitant]
     Active Substance: SODIUM CHLORIDE
     Indication: OVARIAN EPITHELIAL CANCER RECURRENT
     Route: 041
     Dates: start: 20210529, end: 20210529
  3. CISPLATIN. [Suspect]
     Active Substance: CISPLATIN
     Indication: OVARIAN EPITHELIAL CANCER RECURRENT
     Route: 041
     Dates: start: 20210530, end: 20210530
  4. SODIUM CHLORIDE. [Concomitant]
     Active Substance: SODIUM CHLORIDE
     Route: 041
     Dates: start: 20210530, end: 20210530
  5. SODIUM CHLORIDE. [Concomitant]
     Active Substance: SODIUM CHLORIDE
     Route: 041
     Dates: start: 20210530, end: 20210601
  6. DOCETAXEL. [Suspect]
     Active Substance: DOCETAXEL
     Indication: OVARIAN EPITHELIAL CANCER RECURRENT
     Route: 042
     Dates: start: 20210530, end: 20210530
  7. CISPLATIN. [Suspect]
     Active Substance: CISPLATIN
     Route: 041
     Dates: start: 20210531, end: 20210601

REACTIONS (3)
  - Off label use [Unknown]
  - Platelet count decreased [Recovering/Resolving]
  - White blood cell count decreased [Recovered/Resolved]

NARRATIVE: CASE EVENT DATE: 20210604
